FAERS Safety Report 7372438-4 (Version None)
Quarter: 2011Q1

REPORT INFORMATION
  Report Type: 
  Country: None (occurrence: None)
  Receive Date: 20110324
  Receipt Date: 20110317
  Transmission Date: 20110831
  Serious: Yes (Death)
  Sender: FDA-Public Use
  Company Number: CA-BAYER-2011-024343

PATIENT
  Age: 73 Year
  Sex: Male

DRUGS (6)
  1. ALEVE [Suspect]
     Route: 048
  2. GLYBURIDE [Concomitant]
     Route: 048
  3. METFORMIN HCL [Concomitant]
     Route: 048
  4. NEXAVAR [Suspect]
     Indication: PRODUCT USED FOR UNKNOWN INDICATION
     Dosage: 800 MG, QD
     Route: 048
  5. DICETEL [Concomitant]
  6. MINOCYCLINE HCL [Concomitant]
     Route: 048

REACTIONS (4)
  - DISORIENTATION [None]
  - LOSS OF CONSCIOUSNESS [None]
  - INTRACRANIAL HAEMATOMA [None]
  - RESPIRATORY ARREST [None]
